FAERS Safety Report 7006895-X (Version None)
Quarter: 2010Q3

REPORT INFORMATION
  Report Type: 
  Country: None (occurrence: None)
  Receive Date: 20100922
  Receipt Date: 20100914
  Transmission Date: 20110219
  Serious: Yes (Hospitalization)
  Sender: FDA-Public Use
  Company Number: US-ELI_LILLY_AND_COMPANY-US201009004041

PATIENT
  Sex: Female
  Weight: 83.9 kg

DRUGS (8)
  1. BYETTA [Suspect]
     Indication: TYPE 2 DIABETES MELLITUS
     Dosage: 5 UG, 2/D
     Route: 058
  2. BYETTA [Suspect]
     Dosage: 10 UG, 2/D
     Route: 058
  3. LANTUS [Concomitant]
     Indication: TYPE 2 DIABETES MELLITUS
     Dosage: 80 U, AS NEEDED
     Route: 058
  4. NOVOLOG MIX 70/30 [Concomitant]
     Indication: TYPE 2 DIABETES MELLITUS
     Dosage: UNK, AS NEEDED
     Route: 058
  5. SYNTHROID [Concomitant]
     Indication: THYROID DISORDER
     Dosage: 75 MG, DAILY (1/D)
     Route: 048
  6. ESTRATEST [Concomitant]
     Indication: HORMONE LEVEL ABNORMAL
     Dosage: UNK, DAILY (1/D)
     Route: 048
  7. PLAVIX [Concomitant]
     Indication: ANTIPLATELET THERAPY
     Route: 048
  8. XANAX [Concomitant]
     Indication: NERVOUSNESS
     Dosage: 1 MG, 3/D
     Route: 048

REACTIONS (8)
  - BLOOD GLUCOSE DECREASED [None]
  - BLOOD GLUCOSE INCREASED [None]
  - HYPOAESTHESIA [None]
  - MYOCARDIAL INFARCTION [None]
  - OEDEMA PERIPHERAL [None]
  - OFF LABEL USE [None]
  - STAPHYLOCOCCAL INFECTION [None]
  - TREMOR [None]
